FAERS Safety Report 9324877 (Version 3)
Quarter: 2013Q3

REPORT INFORMATION
  Report Type: Spontaneous
  Country: JP (occurrence: JP)
  Receive Date: 20130603
  Receipt Date: 20130912
  Transmission Date: 20140515
  Serious: Yes (Hospitalization)
  Sender: FDA-Public Use
  Company Number: PHHY2013JP054900

PATIENT
  Sex: Female
  Weight: 63 kg

DRUGS (10)
  1. APRESOLIN [Suspect]
     Indication: HYPERTENSION
     Dosage: 1 DF, 30 MG UNK
     Route: 048
     Dates: start: 20090612, end: 20090612
  2. APRESOLIN [Suspect]
     Indication: HYPERTENSION
     Dosage: 1 DF (3.2 MG/ HOUR),
     Route: 042
     Dates: start: 20090613, end: 20090620
  3. MAGNESOL [Concomitant]
     Indication: HYPERTENSION
     Dosage: 1 DF (1GRAM/HOUR), UNK
     Route: 042
  4. MAGNESOL [Concomitant]
     Dosage: 15 ML/HR
     Dates: start: 20090822, end: 20090822
  5. CORTRIL [Concomitant]
     Indication: HORMONE REPLACEMENT THERAPY
     Dosage: 50 MG, DAILY
  6. CORTRIL [Concomitant]
     Indication: RENAL FAILURE
     Dosage: 30 MG, DAILY
     Route: 048
     Dates: start: 20090627
  7. CORTRIL [Concomitant]
     Dosage: 10 MG, DAILY
  8. ADALAT [Concomitant]
     Indication: HYPERTENSION
     Dosage: UNK UKN, UNK
     Route: 048
     Dates: start: 20090821, end: 20090828
  9. UTEMERIN [Concomitant]
     Dosage: UNK UKN, UNK
     Route: 017
     Dates: start: 20090821, end: 20090828
  10. UTEMERIN [Concomitant]
     Dosage: UNK UKN, UNK

REACTIONS (23)
  - Cardiac failure [Unknown]
  - Ejection fraction decreased [Unknown]
  - Ventricular internal diameter abnormal [Unknown]
  - Gestational hypertension [Unknown]
  - Pre-eclampsia [Unknown]
  - Premature delivery [Unknown]
  - Foetal growth restriction [Unknown]
  - Adrenal gland cancer [Recovering/Resolving]
  - Adrenal adenoma [Unknown]
  - Adrenal atrophy [Unknown]
  - Cushing^s syndrome [Recovering/Resolving]
  - Hyperglycaemia [Unknown]
  - Generalised oedema [Unknown]
  - Acne [Unknown]
  - Cushingoid [Recovering/Resolving]
  - Hypokalaemia [Unknown]
  - Secondary hypertension [Recovering/Resolving]
  - Photopsia [Unknown]
  - Vaginal atresia [Unknown]
  - Nausea [Unknown]
  - Headache [Unknown]
  - Blood pressure fluctuation [Unknown]
  - Maternal exposure during pregnancy [Unknown]
